FAERS Safety Report 26162006 (Version 1)
Quarter: 2025Q4

REPORT INFORMATION
  Report Type: Spontaneous
  Country: EU (occurrence: EU)
  Receive Date: 20251216
  Receipt Date: 20251216
  Transmission Date: 20260117
  Serious: Yes (Other)
  Sender: GILEAD
  Company Number: EU-GILEAD-2025-0739764

PATIENT
  Age: 78 Year
  Sex: Female

DRUGS (2)
  1. TRODELVY [Suspect]
     Active Substance: SACITUZUMAB GOVITECAN-HZIY
     Indication: Triple negative breast cancer
     Dosage: UNK
     Route: 065
     Dates: start: 2024
  2. TRODELVY [Suspect]
     Active Substance: SACITUZUMAB GOVITECAN-HZIY
     Dosage: 30TH CYCLE
     Route: 065
     Dates: start: 20251128

REACTIONS (4)
  - Disease progression [Not Recovered/Not Resolved]
  - Neutropenia [Unknown]
  - Asthenia [Unknown]
  - Diarrhoea [Unknown]
